FAERS Safety Report 5252663-9 (Version None)
Quarter: 2007Q1

REPORT INFORMATION
  Report Type: 
  Country: None (occurrence: None)
  Receive Date: 20070301
  Receipt Date: 20061103
  Transmission Date: 20070707
  Serious: Yes (Hospitalization)
  Sender: FDA-Public Use
  Company Number: US-GLAXOSMITHKLINE-A0626185A

PATIENT
  Sex: Female

DRUGS (2)
  1. LAMICTAL [Suspect]
     Indication: EPILEPSY
     Route: 048
     Dates: start: 20061001
  2. NO CONCURRENT MEDICATION [Concomitant]

REACTIONS (4)
  - GRAND MAL CONVULSION [None]
  - LYMPHADENOPATHY [None]
  - PYREXIA [None]
  - RASH [None]
